FAERS Safety Report 16007362 (Version 1)
Quarter: 2019Q1

REPORT INFORMATION
  Report Type: Spontaneous
  Country: US (occurrence: US)
  Receive Date: 20190226
  Receipt Date: 20190226
  Transmission Date: 20190418
  Serious: No
  Sender: FDA-Public Use
  Company Number: US-PFIZER INC-2019079769

PATIENT
  Age: 71 Year
  Sex: Male

DRUGS (1)
  1. GENOTROPIN MQ [Suspect]
     Active Substance: SOMATROPIN
     Dosage: 0.4 MG, DAILY

REACTIONS (4)
  - Blood lactate dehydrogenase decreased [Unknown]
  - Blood thyroid stimulating hormone decreased [Unknown]
  - Blood cholesterol decreased [Unknown]
  - High density lipoprotein decreased [Unknown]

NARRATIVE: CASE EVENT DATE: 20181101
